FAERS Safety Report 19729222 (Version 1)
Quarter: 2021Q3

REPORT INFORMATION
  Report Type: Spontaneous
  Country: AU (occurrence: AU)
  Receive Date: 20210820
  Receipt Date: 20210820
  Transmission Date: 20211014
  Serious: Yes (Other)
  Sender: FDA-Public Use
  Company Number: AU-AMGEN-AUSSP2021126708

PATIENT

DRUGS (1)
  1. PROLIA [Suspect]
     Active Substance: DENOSUMAB
     Indication: PRODUCT USED FOR UNKNOWN INDICATION
     Dosage: UNK
     Route: 065

REACTIONS (7)
  - Tooth disorder [Unknown]
  - Blood cholesterol increased [Unknown]
  - Hypertension [Unknown]
  - Fracture [Unknown]
  - Arthralgia [Unknown]
  - Myalgia [Unknown]
  - Rash [Unknown]
